FAERS Safety Report 17531847 (Version 1)
Quarter: 2020Q1

REPORT INFORMATION
  Report Type: Spontaneous
  Country: TR (occurrence: TR)
  Receive Date: 20200312
  Receipt Date: 20200312
  Transmission Date: 20200409
  Serious: Yes (Other)
  Sender: FDA-Public Use
  Company Number: NVSC2020TR067582

PATIENT
  Age: 12 Year
  Sex: Female

DRUGS (1)
  1. BUDESONIDE. [Suspect]
     Active Substance: BUDESONIDE
     Indication: PROPHYLAXIS
     Dosage: UNK
     Route: 055

REACTIONS (8)
  - Vomiting [Recovering/Resolving]
  - Nausea [Recovering/Resolving]
  - Gastric disorder [Recovering/Resolving]
  - Abdominal tenderness [Recovering/Resolving]
  - Gastric ulcer [Recovering/Resolving]
  - Duodenal ulcer [Recovering/Resolving]
  - Abdominal discomfort [Recovering/Resolving]
  - Abdominal pain upper [Recovering/Resolving]
